FAERS Safety Report 10731701 (Version 3)
Quarter: 2015Q2

REPORT INFORMATION
  Report Type: Spontaneous
  Country: NZ (occurrence: NZ)
  Receive Date: 20150123
  Receipt Date: 20150512
  Transmission Date: 20150821
  Serious: Yes (Life-Threatening, Hospitalization, Other)
  Sender: FDA-Public Use
  Company Number: NZ-ABBVIE-14K-118-1216381-00

PATIENT
  Age: 66 Year
  Sex: Male
  Weight: 94 kg

DRUGS (5)
  1. HUMIRA [Suspect]
     Active Substance: ADALIMUMAB
     Indication: PSORIASIS
     Dosage: ON ALTERNATE WEEKS
     Route: 058
     Dates: start: 200908, end: 20140416
  2. METOPROLOL [Concomitant]
     Active Substance: METOPROLOL
     Indication: HYPERTENSION
     Dosage: 47.5 MANE
     Route: 048
  3. METFORMIN [Concomitant]
     Active Substance: METFORMIN HYDROCHLORIDE
     Indication: TYPE 2 DIABETES MELLITUS
     Dosage: 1700MG MANE, 850MG NOCTE
     Route: 048
  4. GLICLAZIDE [Concomitant]
     Active Substance: GLICLAZIDE
     Indication: TYPE 2 DIABETES MELLITUS
     Dosage: 160MG MANE, 80MG MIDDAY + NOCTE
     Route: 048
  5. DAIVOBET [Concomitant]
     Active Substance: BETAMETHASONE DIPROPIONATE\CALCIPOTRIENE
     Indication: PSORIASIS
     Dosage: APPLY ONCE DAILY AS REQUIRED
     Route: 061
     Dates: start: 201301

REACTIONS (9)
  - Hospitalisation [Not Recovered/Not Resolved]
  - Psoriasis [Unknown]
  - Coronary artery bypass [Recovering/Resolving]
  - Wheezing [Unknown]
  - Drug administration error [Unknown]
  - Lung adenocarcinoma [Recovered/Resolved]
  - Drug dose omission [Unknown]
  - Skin disorder [Not Recovered/Not Resolved]
  - Lung consolidation [Recovered/Resolved]

NARRATIVE: CASE EVENT DATE: 201312
